FAERS Safety Report 23494607 (Version 1)
Quarter: 2024Q1

REPORT INFORMATION
  Report Type: Spontaneous
  Country: US (occurrence: None)
  Receive Date: 20240206
  Receipt Date: 20240206
  Transmission Date: 20240410
  Serious: Yes (Other)
  Sender: FDA-Public Use
  Company Number: None

PATIENT
  Age: 73 Year
  Sex: Female

DRUGS (2)
  1. SPIRIVA RESPIMAT [Suspect]
     Active Substance: TIOTROPIUM BROMIDE
     Dates: start: 20240204, end: 20240204
  2. FAMOTIDINE [Concomitant]
     Active Substance: FAMOTIDINE
     Dates: start: 20230101

REACTIONS (5)
  - Agitation [None]
  - Anxiety [None]
  - Disorientation [None]
  - Impaired driving ability [None]
  - Drug interaction [None]

NARRATIVE: CASE EVENT DATE: 20240204
